FAERS Safety Report 17518899 (Version 3)
Quarter: 2020Q4

REPORT INFORMATION
  Report Type: Spontaneous
  Country: US (occurrence: US)
  Receive Date: 20200309
  Receipt Date: 20201123
  Transmission Date: 20210113
  Serious: No
  Sender: FDA-Public Use
  Company Number: US-PFIZER INC-2019520411

PATIENT
  Age: 63 Year
  Sex: Male
  Weight: 90.72 kg

DRUGS (4)
  1. LYRICA [Suspect]
     Active Substance: PREGABALIN
     Indication: HORNER^S SYNDROME
     Dosage: 400 MG, DAILY (150 MG IN THE MORNING AND 250 MG AT NIGHT)
  2. TROKENDI XR [Concomitant]
     Active Substance: TOPIRAMATE
     Dosage: 100 MG, DAILY
  3. LYRICA [Suspect]
     Active Substance: PREGABALIN
     Dosage: 500 MG, DAILY (TAKE 2 CAPSULES IN THE MORNING AND 3 CAPSULES AT NIGHT AND BEDTIME)
     Route: 048
     Dates: start: 2014
  4. LYRICA [Suspect]
     Active Substance: PREGABALIN
     Indication: MIGRAINE
     Dosage: 500 MG, DAILY (200 MG IN THE MORNING AND 300 MG AT NIGHT)

REACTIONS (5)
  - Intentional product use issue [Unknown]
  - Headache [Unknown]
  - Off label use [Unknown]
  - Product use in unapproved indication [Unknown]
  - Migraine [Unknown]
